FAERS Safety Report 17888199 (Version 1)
Quarter: 2020Q2

REPORT INFORMATION
  Report Type: Spontaneous
  Country: US (occurrence: US)
  Receive Date: 20200611
  Receipt Date: 20200611
  Transmission Date: 20200714
  Serious: Yes (Other)
  Sender: FDA-Public Use
  Company Number: None

PATIENT
  Age: 66 Year
  Sex: Female
  Weight: 144 kg

DRUGS (9)
  1. CETIRIZINE [Concomitant]
     Active Substance: CETIRIZINE HYDROCHLORIDE
     Dates: start: 20200603
  2. ENOXAPARIN [Concomitant]
     Active Substance: ENOXAPARIN
     Dates: start: 20200604
  3. REMDESIVIR. [Suspect]
     Active Substance: REMDESIVIR
     Indication: COVID-19
     Route: 041
     Dates: start: 20200605, end: 20200609
  4. METFORMIN [Concomitant]
     Active Substance: METFORMIN HYDROCHLORIDE
     Dates: start: 20200603
  5. INSULIN DETEMIR [Concomitant]
     Active Substance: INSULIN DETEMIR
     Dates: start: 20200603
  6. METOPROLOL. [Concomitant]
     Active Substance: METOPROLOL
     Dates: start: 20200606
  7. DILTIAZEM. [Concomitant]
     Active Substance: DILTIAZEM
     Dates: start: 20200604
  8. NOVOLOG [Concomitant]
     Active Substance: INSULIN ASPART
     Dates: start: 20200603
  9. ROPINIROLE. [Concomitant]
     Active Substance: ROPINIROLE
     Dates: start: 20200603

REACTIONS (5)
  - Atrial fibrillation [None]
  - Fear [None]
  - Hypotension [None]
  - Lacrimation increased [None]
  - Depression [None]

NARRATIVE: CASE EVENT DATE: 20200606
